FAERS Safety Report 25744262 (Version 2)
Quarter: 2025Q4

REPORT INFORMATION
  Report Type: Report from Study
  Country: AR (occurrence: AR)
  Receive Date: 20250901
  Receipt Date: 20251231
  Transmission Date: 20260119
  Serious: Yes (Other)
  Sender: AMGEN
  Company Number: AR-AMGEN-ARGSL2024209810

PATIENT
  Age: 78 Year
  Sex: Male

DRUGS (2)
  1. VECTIBIX [Suspect]
     Active Substance: PANITUMUMAB
     Indication: Colorectal cancer
     Dosage: UNK, 15 DAYS
     Route: 065
     Dates: start: 20240722
  2. VECTIBIX [Suspect]
     Active Substance: PANITUMUMAB
     Dosage: UNK, 15 DAYS, LOWERD DOSE
     Route: 065

REACTIONS (13)
  - Colostomy [Unknown]
  - Eyelid thickening [Not Recovered/Not Resolved]
  - Eyelid ptosis [Not Recovered/Not Resolved]
  - Illness [Unknown]
  - Insomnia [Unknown]
  - Eye infection [Not Recovered/Not Resolved]
  - Diarrhoea [Unknown]
  - Acne [Unknown]
  - Rash [Not Recovered/Not Resolved]
  - Lip swelling [Unknown]
  - Mouth swelling [Unknown]
  - Eye discharge [Not Recovered/Not Resolved]
  - Therapy interrupted [Unknown]

NARRATIVE: CASE EVENT DATE: 20240101
